FAERS Safety Report 24922978 (Version 2)
Quarter: 2025Q1

REPORT INFORMATION
  Report Type: Spontaneous
  Country: US (occurrence: US)
  Receive Date: 20250204
  Receipt Date: 20250204
  Transmission Date: 20250409
  Serious: Yes (Hospitalization, Other)
  Sender: COLLEGIUM PHARMACEUTICAL
  Company Number: US-COLLEGIUM PHARMACEUTICAL, INC.-20250100892

PATIENT

DRUGS (1)
  1. XTAMPZA ER [Suspect]
     Active Substance: OXYCODONE
     Indication: Pain
     Route: 048
     Dates: start: 2021

REACTIONS (11)
  - Cardiac disorder [Unknown]
  - Drug withdrawal syndrome [Unknown]
  - Malaise [Unknown]
  - Tremor [Unknown]
  - Hyperhidrosis [Unknown]
  - Palpitations [Unknown]
  - Insomnia [Unknown]
  - Poor quality sleep [Unknown]
  - Heart rate increased [Unknown]
  - Burning sensation [Not Recovered/Not Resolved]
  - Therapeutic product effect incomplete [Unknown]

NARRATIVE: CASE EVENT DATE: 20240101
